FAERS Safety Report 7551812-7 (Version None)
Quarter: 2011Q2

REPORT INFORMATION
  Report Type: 
  Country: None (occurrence: None)
  Receive Date: 20110616
  Receipt Date: 20110606
  Transmission Date: 20111010
  Serious: Yes (Hospitalization, Other)
  Sender: FDA-Public Use
  Company Number: PR-ALEXION-A201100792

PATIENT
  Sex: Female

DRUGS (1)
  1. SOLIRIS [Suspect]
     Indication: HAEMOLYTIC URAEMIC SYNDROME
     Dosage: 600 MG, Q2W
     Route: 042
     Dates: start: 20100819

REACTIONS (10)
  - PNEUMOTHORAX [None]
  - HYPOXIA [None]
  - STAPHYLOCOCCAL SEPSIS [None]
  - PSEUDOMONAS INFECTION [None]
  - URINARY TRACT INFECTION [None]
  - RESPIRATORY DISTRESS [None]
  - RENAL FAILURE ACUTE [None]
  - CONSTIPATION [None]
  - SEPTIC SHOCK [None]
  - HYPOTHYROIDISM [None]
